FAERS Safety Report 8922465 (Version 1)
Quarter: 2012Q4

REPORT INFORMATION
  Report Type: 
  Country: AR (occurrence: AR)
  Receive Date: 20121123
  Receipt Date: 20121123
  Transmission Date: 20130627
  Serious: Yes (Other)
  Sender: FDA-Public Use
  Company Number: PHHY2012AR106680

PATIENT
  Age: 64 None
  Sex: Male

DRUGS (1)
  1. EXFORGE [Suspect]
     Indication: HYPERTENSION
     Dosage: 1 DF (160/10 mg), UNK
     Route: 048
     Dates: start: 201111, end: 201210

REACTIONS (2)
  - Cerebrovascular accident [Not Recovered/Not Resolved]
  - Ankle fracture [Recovering/Resolving]
